FAERS Safety Report 5059144-6 (Version None)
Quarter: 2006Q2

REPORT INFORMATION
  Report Type: 
  Country: None (occurrence: None)
  Receive Date: 20060629
  Receipt Date: 20060418
  Transmission Date: 20061013
  Serious: No
  Sender: FDA-Public Use
  Company Number: PHEH2006US05100

PATIENT
  Age: 55 Year
  Sex: Female

DRUGS (1)
  1. ENABLEX [Suspect]
     Indication: HYPERTONIC BLADDER
     Route: 065
     Dates: start: 20060417

REACTIONS (2)
  - DYSPEPSIA [None]
  - VOMITING [None]
